FAERS Safety Report 17649096 (Version 1)
Quarter: 2020Q2

REPORT INFORMATION
  Report Type: Report from Study
  Country: None (occurrence: US)
  Receive Date: 20200409
  Receipt Date: 20200409
  Transmission Date: 20200713
  Serious: Yes (Death, Hospitalization, Other)
  Sender: FDA-Public Use
  Company Number: US-ABBVIE-20K-163-3353189-00

PATIENT
  Age: 68 Year
  Sex: Male
  Weight: 92.4 kg

DRUGS (3)
  1. VENCLEXTA [Suspect]
     Active Substance: VENETOCLAX
     Indication: ACUTE MYELOID LEUKAEMIA
     Route: 048
     Dates: start: 20190416, end: 201906
  2. VANCOMYCIN [Suspect]
     Active Substance: VANCOMYCIN
     Indication: HEPATITIS VIRAL
     Route: 065
     Dates: start: 20190616
  3. AMPHOTERICIN [Suspect]
     Active Substance: AMPHOTERICIN B
     Indication: HEPATITIS VIRAL
     Route: 065
     Dates: start: 20190616

REACTIONS (9)
  - Immunodeficiency [Unknown]
  - Hepatic failure [Unknown]
  - Right ventricular failure [Unknown]
  - Renal failure [Unknown]
  - Fungal infection [Unknown]
  - Acute myeloid leukaemia [Fatal]
  - Hepatitis viral [Unknown]
  - Sepsis [Recovered/Resolved]
  - Off label use [Unknown]

NARRATIVE: CASE EVENT DATE: 20190416
